FAERS Safety Report 25574982 (Version 1)
Quarter: 2025Q3

REPORT INFORMATION
  Report Type: Spontaneous
  Country: AU (occurrence: AU)
  Receive Date: 20250718
  Receipt Date: 20250718
  Transmission Date: 20251021
  Serious: Yes (Death, Other)
  Sender: GLAXOSMITHKLINE
  Company Number: AU-GSK-AU2025090455

PATIENT
  Sex: Female

DRUGS (1)
  1. MOMELOTINIB DIHYDROCHLORIDE [Suspect]
     Active Substance: MOMELOTINIB DIHYDROCHLORIDE
     Indication: Product used for unknown indication

REACTIONS (3)
  - Haemorrhage intracranial [Fatal]
  - Platelet count decreased [Unknown]
  - Fall [Unknown]
